FAERS Safety Report 8840839 (Version 1)
Quarter: 2012Q4

REPORT INFORMATION
  Report Type: 
  Country: US (occurrence: US)
  Receive Date: 20121015
  Receipt Date: 20121015
  Transmission Date: 20130627
  Serious: Yes (Other)
  Sender: FDA-Public Use
  Company Number: US-ROCHE-1140188

PATIENT

DRUGS (3)
  1. AVASTIN [Suspect]
     Indication: OFF LABEL USE
     Route: 031
  2. LUCENTIS [Suspect]
     Indication: PRODUCT USED FOR UNKNOWN INDICATION
     Route: 065
  3. AFLIBERCEPT [Concomitant]

REACTIONS (3)
  - Endophthalmitis [Unknown]
  - Blindness [Unknown]
  - Poor quality drug administered [Unknown]
